FAERS Safety Report 16404692 (Version 2)
Quarter: 2021Q4

REPORT INFORMATION
  Report Type: Spontaneous
  Country: US (occurrence: US)
  Receive Date: 20190607
  Receipt Date: 20211005
  Transmission Date: 20220303
  Serious: No
  Sender: FDA-Public Use
  Company Number: US-VERTEX PHARMACEUTICALS-2019-005141

PATIENT
  Sex: Male
  Weight: 19.96 kg

DRUGS (1)
  1. ORKAMBI [Suspect]
     Active Substance: IVACAFTOR\LUMACAFTOR
     Indication: Cystic fibrosis
     Dosage: 1 PACKET (150MG/ 188MG), BID
     Route: 048
     Dates: start: 20180911, end: 20210917

REACTIONS (1)
  - Hepatic enzyme increased [Unknown]
